FAERS Safety Report 5425958-3 (Version None)
Quarter: 2007Q3

REPORT INFORMATION
  Report Type: 
  Country: None (occurrence: None)
  Receive Date: 20070824
  Receipt Date: 20070824
  Transmission Date: 20080115
  Serious: Yes (Hospitalization)
  Sender: FDA-Public Use
  Company Number: None

PATIENT
  Sex: Female
  Weight: 56.8 kg

DRUGS (8)
  1. LIDOCAINE [Suspect]
     Indication: ANAESTHESIA
     Dates: start: 20070421
  2. SERTRALINE [Concomitant]
  3. SENNA [Concomitant]
  4. HEPARIN [Concomitant]
  5. CLONAZEPAM [Concomitant]
  6. DOCUSATE [Concomitant]
  7. CEFEPIME [Concomitant]
  8. HYDROMORPHONE HCL [Concomitant]

REACTIONS (1)
  - METHAEMOGLOBINAEMIA [None]
